FAERS Safety Report 24006199 (Version 1)
Quarter: 2024Q2

REPORT INFORMATION
  Report Type: Report from Study
  Country: GB (occurrence: GB)
  Receive Date: 20240624
  Receipt Date: 20240624
  Transmission Date: 20240716
  Serious: Yes (Hospitalization)
  Sender: FDA-Public Use
  Company Number: GB-GSK-GB2020GSK243787

PATIENT

DRUGS (1)
  1. MEPOLIZUMAB [Suspect]
     Active Substance: MEPOLIZUMAB
     Indication: Hypereosinophilic syndrome
     Dosage: 58
     Route: 042
     Dates: start: 20110614

REACTIONS (1)
  - Rehabilitation therapy [Recovered/Resolved]

NARRATIVE: CASE EVENT DATE: 20201113
